FAERS Safety Report 9759748 (Version 2)
Quarter: 2013Q4

REPORT INFORMATION
  Report Type: Spontaneous
  Country: US (occurrence: US)
  Receive Date: 20131216
  Receipt Date: 20131216
  Transmission Date: 20140711
  Serious: No
  Sender: FDA-Public Use
  Company Number: US-GILEAD-2010-0029041

PATIENT
  Age: 76 Year
  Sex: Female

DRUGS (12)
  1. LETAIRIS [Suspect]
     Indication: PULMONARY ARTERIAL HYPERTENSION
     Route: 048
     Dates: start: 20100120, end: 20100505
  2. OYST-CAL D [Concomitant]
  3. MULTI-DAY VITAMINS [Concomitant]
  4. ZOCOR [Concomitant]
  5. POTASSIUM CHLORIDE [Concomitant]
  6. LOPRESSOR [Concomitant]
  7. LASIX [Concomitant]
  8. ALLOPURINOL [Concomitant]
  9. TRENTAL [Concomitant]
  10. CHLORTHALIDONE [Concomitant]
  11. NEXIUM [Concomitant]
  12. REVATIO [Concomitant]

REACTIONS (2)
  - Oedema [Recovered/Resolved]
  - Palpitations [Recovered/Resolved]
